FAERS Safety Report 7973502-9 (Version None)
Quarter: 2011Q4

REPORT INFORMATION
  Report Type: 
  Country: None (occurrence: None)
  Receive Date: 20111201
  Receipt Date: 20111118
  Transmission Date: 20120403
  Serious: Yes (Hospitalization, Other)
  Sender: FDA-Public Use
  Company Number: 2011SP015864

PATIENT
  Age: 11 Year
  Sex: Female
  Weight: 39.0093 kg

DRUGS (1)
  1. COPPERTONE KIDS SUNSCREEN LOTION SPF 60 (AVOBENZONE/HOMOSALATE/OCTISAL [Suspect]
     Dosage: TOP
     Route: 061
     Dates: start: 20110328, end: 20110329

REACTIONS (6)
  - BURNS SECOND DEGREE [None]
  - BURNING SENSATION [None]
  - TONSILLAR HYPERTROPHY [None]
  - PRURITUS [None]
  - BLISTER [None]
  - RASH ERYTHEMATOUS [None]
